FAERS Safety Report 25238827 (Version 1)
Quarter: 2025Q2

REPORT INFORMATION
  Report Type: Spontaneous
  Country: US (occurrence: US)
  Receive Date: 20250425
  Receipt Date: 20250425
  Transmission Date: 20250717
  Serious: Yes (Hospitalization)
  Sender: MERCK SHARP & DOHME LLC
  Company Number: US-009507513-2277175

PATIENT
  Age: 84 Year
  Sex: Female

DRUGS (2)
  1. PEMBROLIZUMAB [Suspect]
     Active Substance: PEMBROLIZUMAB
     Indication: Bladder cancer
     Dates: start: 2021
  2. APIXABAN [Concomitant]
     Active Substance: APIXABAN
     Route: 048

REACTIONS (2)
  - Intestinal pseudo-obstruction [Recovering/Resolving]
  - Incorrect dose administered [Unknown]
